FAERS Safety Report 13342625 (Version 1)
Quarter: 2017Q1

REPORT INFORMATION
  Report Type: Spontaneous
  Country: CA (occurrence: US)
  Receive Date: 20170316
  Receipt Date: 20170316
  Transmission Date: 20170428
  Serious: Yes (Hospitalization)
  Sender: FDA-Public Use
  Company Number: None

PATIENT
  Age: 75 Year
  Sex: Male
  Weight: 87.9 kg

DRUGS (5)
  1. ZOPLICONE [Concomitant]
     Active Substance: ZOPICLONE
  2. ANTICOAGULANT [Concomitant]
     Active Substance: UNSPECIFIED INGREDIENT
  3. ENALAPRIL [Concomitant]
     Active Substance: ENALAPRIL
  4. NEXAVAR [Suspect]
     Active Substance: SORAFENIB
     Dates: end: 20170208
  5. VASOTEC [Concomitant]
     Active Substance: ENALAPRIL MALEATE

REACTIONS (2)
  - Melaena [None]
  - Mesenteric vein thrombosis [None]

NARRATIVE: CASE EVENT DATE: 20170206
